FAERS Safety Report 21485854 (Version 2)
Quarter: 2022Q4

REPORT INFORMATION
  Report Type: Spontaneous
  Country: US (occurrence: US)
  Receive Date: 20221020
  Receipt Date: 20221108
  Transmission Date: 20230113
  Serious: Yes (Other)
  Sender: FDA-Public Use
  Company Number: US-TEVA-2022-US-2816616

PATIENT
  Age: 29 Year
  Sex: Male

DRUGS (5)
  1. ACYCLOVIR [Suspect]
     Active Substance: ACYCLOVIR
     Indication: Acanthamoeba keratitis
     Route: 048
  2. MOXIFLOXACIN [Suspect]
     Active Substance: MOXIFLOXACIN
     Indication: Acanthamoeba keratitis
     Route: 065
  3. MILTEFOSINE [Suspect]
     Active Substance: MILTEFOSINE
     Indication: Acanthamoeba keratitis
     Dosage: 100 MILLIGRAM DAILY;
     Route: 048
  4. POLIHEXANIDE [Suspect]
     Active Substance: POLIHEXANIDE
     Indication: Acanthamoeba keratitis
     Dosage: POLIHEXANIDE: 0.02 %
     Route: 065
  5. PROPAMIDINE [Suspect]
     Active Substance: PROPAMIDINE
     Indication: Acanthamoeba keratitis
     Dosage: PROPAMIDINE: 0.10 %
     Route: 065

REACTIONS (3)
  - Inflammation [Recovered/Resolved]
  - Alanine aminotransferase increased [Recovered/Resolved]
  - Drug ineffective [Unknown]
